FAERS Safety Report 19498222 (Version 1)
Quarter: 2021Q3

REPORT INFORMATION
  Report Type: Spontaneous
  Country: GB (occurrence: GB)
  Receive Date: 20210706
  Receipt Date: 20210706
  Transmission Date: 20211014
  Serious: Yes (Hospitalization, Other)
  Sender: FDA-Public Use
  Company Number: GB-TEVA-2021-GB-1930417

PATIENT
  Age: 84 Year
  Sex: Male

DRUGS (15)
  1. BUMETANIDE. [Concomitant]
     Active Substance: BUMETANIDE
     Dosage: 1 MILLIGRAM DAILY; MORNING
  2. CO?AMOXICLAV [Concomitant]
     Active Substance: AMOXICILLIN\CLAVULANATE POTASSIUM
     Dosage: 30 ML DAILY; 250MG/62MG/5ML
     Route: 048
     Dates: start: 20201030
  3. SENNA [Concomitant]
     Active Substance: SENNA LEAF\SENNOSIDES\SENNOSIDES A AND B
     Dosage: 15 MILLIGRAM DAILY; AT NIGHT
  4. LEVEMIR [Concomitant]
     Active Substance: INSULIN DETEMIR
     Dosage: 28 IU (INTERNATIONAL UNIT) DAILY; 100UNITS/ML SOLUTION. IN THE MORNING. DOSE AMENDED
  5. ALFACALCIDOL [Concomitant]
     Active Substance: ALFACALCIDOL
  6. SODIUM BICARBONATE. [Concomitant]
     Active Substance: SODIUM BICARBONATE
     Dosage: 3000 MILLIGRAM DAILY; AFTER FOOD
  7. CIPROFLOXACIN. [Concomitant]
     Active Substance: CIPROFLOXACIN
     Dosage: 6 GTT DAILY;
     Route: 001
     Dates: start: 20201019, end: 20201025
  8. NOVORAPID [Concomitant]
     Active Substance: INSULIN ASPART
     Dosage: 18 IU (INTERNATIONAL UNIT) DAILY; 100UNITS/ML SOLUTION
  9. WARFARIN [Suspect]
     Active Substance: WARFARIN
     Route: 065
  10. INSULIN DETEMIR [Concomitant]
     Active Substance: INSULIN DETEMIR
  11. LINAGLIPTIN [Concomitant]
     Active Substance: LINAGLIPTIN
     Dosage: 5 MILLIGRAM DAILY;
  12. TAMSULOSIN [Concomitant]
     Active Substance: TAMSULOSIN
     Dosage: 400 MICROGRAM DAILY;
  13. AMOXICILLIN. [Concomitant]
     Active Substance: AMOXICILLIN
     Dosage: 1500 MILLIGRAM DAILY;
     Dates: start: 20201002
  14. ATORVASTATIN [Concomitant]
     Active Substance: ATORVASTATIN
     Dosage: 10 MILLIGRAM DAILY;
  15. BISOPROLOL [Concomitant]
     Active Substance: BISOPROLOL
     Dosage: 2.5 MILLIGRAM DAILY;

REACTIONS (2)
  - Upper gastrointestinal haemorrhage [Unknown]
  - Atrial fibrillation [Unknown]
